FAERS Safety Report 18695548 (Version 5)
Quarter: 2022Q2

REPORT INFORMATION
  Report Type: Spontaneous
  Country: US (occurrence: US)
  Receive Date: 20210104
  Receipt Date: 20220422
  Transmission Date: 20220720
  Serious: No
  Sender: FDA-Public Use
  Company Number: US-PFIZER INC-2020134354

PATIENT
  Age: 75 Year
  Sex: Male

DRUGS (2)
  1. GENOTROPIN [Suspect]
     Active Substance: SOMATROPIN
     Dosage: 1.3 MG, THREE DAYS A WEEK (MONDAY, WEDNESDAY, AND FRIDAY)
     Dates: start: 2011
  2. GENOTROPIN [Suspect]
     Active Substance: SOMATROPIN
     Dosage: 1.3 MG, THREE DAYS A WEEK (MONDAY, WEDNESDAY, AND FRIDAY)
     Dates: start: 20210105

REACTIONS (5)
  - Hypoacusis [Unknown]
  - Device use error [Unknown]
  - Drug dose omission by device [Unknown]
  - Incorrect dose administered by device [Unknown]
  - Device issue [Unknown]

NARRATIVE: CASE EVENT DATE: 20200401
